FAERS Safety Report 8932535 (Version 2)
Quarter: 2013Q1

REPORT INFORMATION
  Report Type: Spontaneous
  Country: IT (occurrence: None)
  Receive Date: 20121120
  Receipt Date: 20130110
  Transmission Date: 20140127
  Serious: Yes (Life-Threatening, Hospitalization)
  Sender: FDA-Public Use
  Company Number: 2012IT007152

PATIENT
  Age: 46 Year
  Sex: Male

DRUGS (4)
  1. ALOXI [Suspect]
     Indication: PROPHYLAXIS OF NAUSEA AND VOMITING
     Dosage: 1 DF, CYCLICAL , INTRAVENOUS
     Route: 042
     Dates: start: 20121022, end: 20121025
  2. VINORELBINA [Suspect]
     Indication: NON-HODGKIN^S LYMPHOMA
     Dosage: 40 MG , CYCLICAL , INTRAVENOUS
     Route: 042
     Dates: start: 20121022, end: 20121022
  3. HOLOXAN [Suspect]
     Indication: NON-HODGKIN^S LYMPHOMA
     Dosage: 300 MG, CYCLICAL, INTRAVENOUS
     Route: 042
     Dates: start: 20121022, end: 20121025
  4. GEMCITABINE [Suspect]
     Indication: NON-HODGKIN^S LYMPHOMA
     Dosage: 1600 MG, CYCLICAL, INTRANVENOUS
     Route: 042
     Dates: start: 20121022, end: 20121025

REACTIONS (6)
  - Toxic epidermal necrolysis [None]
  - Neutropenia [None]
  - Hyperpyrexia [None]
  - Haemoglobin decreased [None]
  - Platelet count decreased [None]
  - White blood cell count decreased [None]
